FAERS Safety Report 7929007-4 (Version None)
Quarter: 2011Q4

REPORT INFORMATION
  Report Type: 
  Country: None (occurrence: None)
  Receive Date: 20111118
  Receipt Date: 20111109
  Transmission Date: 20120403
  Serious: Yes (Other)
  Sender: FDA-Public Use
  Company Number: AU-ALLERGAN-1114903US

PATIENT
  Age: 77 Year
  Sex: Female

DRUGS (2)
  1. LUMIGAN [Suspect]
     Indication: GLAUCOMA
     Dosage: UNK
     Route: 047
  2. AZOPT [Concomitant]
     Indication: GLAUCOMA

REACTIONS (2)
  - MELANOCYTIC NAEVUS [None]
  - MALIGNANT MELANOMA OF EYELID [None]
